FAERS Safety Report 5961385-8 (Version None)
Quarter: 2008Q4

REPORT INFORMATION
  Report Type: 
  Country: None (occurrence: None)
  Receive Date: 20081121
  Receipt Date: 20081107
  Transmission Date: 20090506
  Serious: No
  Sender: FDA-Public Use
  Company Number: GB-ELI_LILLY_AND_COMPANY-GB200811001838

PATIENT
  Sex: Male

DRUGS (2)
  1. CIALIS [Suspect]
     Dosage: 5 MG, DAILY (1/D)
     Route: 065
  2. CIALIS [Suspect]
     Dosage: TABLET DIVIDED INTO SIX PIECES, QOD
     Route: 065

REACTIONS (2)
  - MUSCULOSKELETAL PAIN [None]
  - VISION BLURRED [None]
